FAERS Safety Report 12504673 (Version 3)
Quarter: 2016Q3

REPORT INFORMATION
  Report Type: Report from Study
  Country: US (occurrence: US)
  Receive Date: 20160628
  Receipt Date: 20160922
  Transmission Date: 20161109
  Serious: Yes (Hospitalization)
  Sender: FDA-Public Use
  Company Number: PHEH2016US015796

PATIENT
  Age: 19 Year
  Sex: Female
  Weight: 62.6 kg

DRUGS (21)
  1. ILARIS [Suspect]
     Active Substance: CANAKINUMAB
     Dosage: UNK, QMO
     Route: 065
  2. ILARIS [Suspect]
     Active Substance: CANAKINUMAB
     Dosage: 200 MG, EVERY 28 DAYS
     Route: 058
     Dates: start: 20160212
  3. OMEPRAZOLE. [Concomitant]
     Active Substance: OMEPRAZOLE
     Indication: NAUSEA
     Dosage: 20 MG, QD
     Route: 048
     Dates: start: 20160212
  4. FLEXERIL [Concomitant]
     Active Substance: CYCLOBENZAPRINE HYDROCHLORIDE
     Indication: PAIN
     Dosage: 5 MG, TID
     Route: 048
  5. FLEXERIL [Concomitant]
     Active Substance: CYCLOBENZAPRINE HYDROCHLORIDE
     Indication: MUSCLE TIGHTNESS
  6. FLEXERIL [Concomitant]
     Active Substance: CYCLOBENZAPRINE HYDROCHLORIDE
     Indication: MUSCLE SPASTICITY
  7. FOLVITE [Concomitant]
     Active Substance: FOLIC ACID
     Indication: PRODUCT USED FOR UNKNOWN INDICATION
     Dosage: 1 MG, QD
     Route: 048
     Dates: start: 20140530
  8. PROZAC [Concomitant]
     Active Substance: FLUOXETINE HYDROCHLORIDE
     Indication: ANXIETY
     Dosage: 20 MG, QD
     Route: 048
     Dates: start: 20150904
  9. PHENERGAN                          /01851401/ [Concomitant]
     Indication: NAUSEA
     Dosage: 12.5 MG, EVERY 6 HOURS PRN
     Route: 048
  10. METHOTREXATE. [Suspect]
     Active Substance: METHOTREXATE
     Indication: URTICARIA
     Dosage: 20 MG, UNK
     Route: 058
     Dates: start: 20140530
  11. VITAMIN D3 [Concomitant]
     Active Substance: CHOLECALCIFEROL
     Indication: PRODUCT USED FOR UNKNOWN INDICATION
     Dosage: 1 DF, QD
     Route: 048
  12. PRILOSEC [Concomitant]
     Active Substance: OMEPRAZOLE MAGNESIUM
     Indication: PRODUCT USED FOR UNKNOWN INDICATION
     Dosage: 20 MG, QD
     Route: 048
  13. IMITREX [Concomitant]
     Active Substance: SUMATRIPTAN SUCCINATE
     Indication: ABDOMINAL PAIN
  14. PHENERGAN [Concomitant]
     Active Substance: PROMETHAZINE HYDROCHLORIDE
     Indication: NAUSEA
     Dosage: 12.5 MG, UNK
     Route: 048
     Dates: start: 20160617
  15. RHEUMATREX [Concomitant]
     Active Substance: METHOTREXATE SODIUM
     Indication: PRODUCT USED FOR UNKNOWN INDICATION
     Dosage: 2.5 MG, 8 TABLETS ONCE A WEEK
     Route: 048
  16. EPOPEN [Concomitant]
     Indication: HYPERSENSITIVITY
     Dosage: 1 DF, PRN
     Route: 030
  17. ILARIS [Suspect]
     Active Substance: CANAKINUMAB
     Indication: URTICARIA CHRONIC
     Dosage: UNK
     Route: 065
     Dates: start: 201509
  18. ALLEGRA [Concomitant]
     Active Substance: FEXOFENADINE HYDROCHLORIDE
     Indication: URTICARIA
     Dosage: 180 MG, QD
     Route: 048
     Dates: start: 20141209
  19. PERIACTIN [Concomitant]
     Active Substance: CYPROHEPTADINE HYDROCHLORIDE
     Indication: PRODUCT USED FOR UNKNOWN INDICATION
     Dosage: 4 MG, BID
     Route: 048
  20. ZOFRAN [Concomitant]
     Active Substance: ONDANSETRON HYDROCHLORIDE
     Indication: NAUSEA
     Dosage: 4 MG, EVERY 8 HOURS PRN
     Route: 048
  21. IMITREX [Concomitant]
     Active Substance: SUMATRIPTAN SUCCINATE
     Indication: CYCLIC VOMITING SYNDROME
     Dosage: 25 MG, PRN
     Route: 048
     Dates: start: 20160212

REACTIONS (11)
  - Dysuria [Unknown]
  - Atrioventricular block first degree [Unknown]
  - Asthenia [Recovered/Resolved]
  - Fatigue [Recovered/Resolved]
  - Pruritus [Unknown]
  - Gastrooesophageal reflux disease [Unknown]
  - Diarrhoea [Recovered/Resolved]
  - Urticaria [Recovered/Resolved]
  - Product use issue [Unknown]
  - Vomiting [Recovered/Resolved]
  - Urticaria [Unknown]

NARRATIVE: CASE EVENT DATE: 201603
